FAERS Safety Report 6089881-6 (Version None)
Quarter: 2009Q1

REPORT INFORMATION
  Report Type: 
  Country: None (occurrence: None)
  Receive Date: 20090220
  Receipt Date: 20090213
  Transmission Date: 20090719
  Serious: Yes (Hospitalization)
  Sender: FDA-Public Use
  Company Number: 2008SP008566

PATIENT
  Age: 57 Year
  Sex: Female
  Weight: 66.7 kg

DRUGS (15)
  1. TEMODAR [Suspect]
     Indication: HEPATIC NEOPLASM MALIGNANT
     Dosage: 200 MG/M2; QD; PO 150 MG/M2; QD; PO
     Route: 048
     Dates: start: 20080402, end: 20080406
  2. TEMODAR [Suspect]
     Indication: HEPATIC NEOPLASM MALIGNANT
     Dosage: 200 MG/M2; QD; PO 150 MG/M2; QD; PO
     Route: 048
     Dates: start: 20080513, end: 20080515
  3. ABT-888 (INVESTIGATIONAL DRUG) [Suspect]
     Indication: HEPATIC NEOPLASM MALIGNANT
     Dosage: 80 MG; BID; PO 40 MG; BID; PO
     Route: 048
     Dates: start: 20080403, end: 20080408
  4. ABT-888 (INVESTIGATIONAL DRUG) [Suspect]
     Indication: HEPATIC NEOPLASM MALIGNANT
     Dosage: 80 MG; BID; PO 40 MG; BID; PO
     Route: 048
     Dates: start: 20080513, end: 20080515
  5. SORAFENIB [Concomitant]
  6. LANSOPRAZOLE [Concomitant]
  7. ONDANSETRON [Concomitant]
  8. METOCLOPRAMIDE [Concomitant]
  9. DIPHENHYDRAMINE HYDROCHLORIDE [Concomitant]
  10. OMEPRAZOLE [Concomitant]
  11. TYLENOL [Concomitant]
  12. IMODIUM [Concomitant]
  13. HYDROCODONE COMPOUND [Concomitant]
  14. DIPHENHYDRAMINE HCL [Concomitant]
  15. ASPIRIN [Concomitant]

REACTIONS (12)
  - ABDOMINAL TENDERNESS [None]
  - BLISTER [None]
  - DEHYDRATION [None]
  - FREQUENT BOWEL MOVEMENTS [None]
  - GASTROINTESTINAL HAEMORRHAGE [None]
  - HEADACHE [None]
  - LEUKOPENIA [None]
  - NASAL DISORDER [None]
  - NEUTROPENIA [None]
  - PULMONARY EMBOLISM [None]
  - THROMBOCYTOPENIA [None]
  - VESSEL PUNCTURE SITE HAEMATOMA [None]
